FAERS Safety Report 6612898-7 (Version None)
Quarter: 2010Q1

REPORT INFORMATION
  Report Type: 
  Country: None (occurrence: None)
  Receive Date: 20100303
  Receipt Date: 20100217
  Transmission Date: 20100710
  Serious: Yes (Disabling, Other)
  Sender: FDA-Public Use
  Company Number: GB-MYLANLABS-2010S1002699

PATIENT
  Age: 93 Year
  Sex: Female

DRUGS (5)
  1. ALENDRONIC ACID [Suspect]
     Indication: OSTEOPOROSIS
     Dates: start: 20091001, end: 20100101
  2. ASPIRIN [Concomitant]
     Indication: AORTIC STENOSIS
     Route: 048
  3. CALFOVIT D3 [Concomitant]
     Indication: OSTEOPOROSIS
     Route: 048
     Dates: start: 20091001, end: 20100101
  4. OMEPRAZOLE [Concomitant]
     Indication: GASTRIC DISORDER
     Route: 048
  5. SECURON SR [Concomitant]
     Indication: HYPERTENSION
     Route: 048

REACTIONS (3)
  - DECREASED APPETITE [None]
  - DYSPHAGIA [None]
  - MOUTH ULCERATION [None]
